FAERS Safety Report 4832799-4 (Version None)
Quarter: 2005Q4

REPORT INFORMATION
  Report Type: 
  Country: None (occurrence: None)
  Receive Date: 20051121
  Receipt Date: 20051013
  Transmission Date: 20060501
  Serious: Yes (Hospitalization)
  Sender: FDA-Public Use
  Company Number: PHBS2005JP15310

PATIENT
  Age: 57 Year
  Sex: Female

DRUGS (9)
  1. BASEN [Concomitant]
     Indication: DIABETES MELLITUS
     Dosage: 0.9 MG/D
     Route: 048
     Dates: start: 20031101, end: 20051010
  2. AMARYL [Concomitant]
     Indication: DIABETES MELLITUS
     Dosage: 4 MG/D
     Route: 048
     Dates: start: 20031101, end: 20051010
  3. MELBIN [Concomitant]
     Indication: DIABETES MELLITUS
     Dosage: 750 MG/D
     Route: 048
     Dates: start: 20031101, end: 20051010
  4. LIPITOR [Concomitant]
     Indication: HYPERLIPIDAEMIA
     Dosage: 10 MG/D
     Route: 048
     Dates: start: 20031101, end: 20051010
  5. LAMISIL [Suspect]
     Indication: NAIL TINEA
     Dosage: 125 MG, QD
     Route: 048
     Dates: start: 20050913, end: 20051006
  6. FLOMOX [Concomitant]
     Indication: NASOPHARYNGITIS
     Route: 048
     Dates: start: 20051005, end: 20051007
  7. ACINON [Concomitant]
     Indication: STOMACH DISCOMFORT
     Route: 048
     Dates: start: 20051008, end: 20051011
  8. STROCAIN [Concomitant]
     Indication: STOMACH DISCOMFORT
     Route: 048
     Dates: start: 20051008, end: 20051011
  9. PL GRAN. [Suspect]
     Indication: NASOPHARYNGITIS
     Route: 048
     Dates: start: 20051005, end: 20051007

REACTIONS (11)
  - ALANINE AMINOTRANSFERASE INCREASED [None]
  - ASPARTATE AMINOTRANSFERASE INCREASED [None]
  - BLOOD ALKALINE PHOSPHATASE INCREASED [None]
  - CHILLS [None]
  - DRUG INTERACTION [None]
  - FEELING COLD [None]
  - GAMMA-GLUTAMYLTRANSFERASE INCREASED [None]
  - HEPATIC FUNCTION ABNORMAL [None]
  - MALAISE [None]
  - NASOPHARYNGITIS [None]
  - STOMACH DISCOMFORT [None]
